FAERS Safety Report 17955246 (Version 1)
Quarter: 2020Q2

REPORT INFORMATION
  Report Type: Spontaneous
  Country: US (occurrence: US)
  Receive Date: 20200626
  Receipt Date: 20200626
  Transmission Date: 20200714
  Serious: No
  Sender: FDA-Public Use
  Company Number: None

PATIENT
  Age: 59 Year
  Sex: Female

DRUGS (19)
  1. SUPER B COMPLEX [Concomitant]
     Active Substance: CYANOCOBALAMIN\DEXPANTHENOL\NIACINAMIDE\PYRIDOXINE HYDROCHLORIDE\RIBOFLAVIN 5^-PHOSPHATE SODIUM\THIAMINE HYDROCHLORIDE\VITAMIN B COMPLEX
  2. FLUTCASONE NASAL SPRAY [Concomitant]
  3. SUCRALFATE 1GM [Concomitant]
  4. TRADJENTA [Concomitant]
     Active Substance: LINAGLIPTIN
  5. FORTEO [Suspect]
     Active Substance: TERIPARATIDE
     Indication: OSTEOPOROSIS
     Route: 058
     Dates: start: 20181228
  6. PREDNISONE 5MG [Concomitant]
     Active Substance: PREDNISONE
  7. OMEPRAZOLE 40MG [Concomitant]
     Active Substance: OMEPRAZOLE
  8. MELOXICAM 15MG [Concomitant]
     Active Substance: MELOXICAM
  9. MONTELUKAST [Concomitant]
     Active Substance: MONTELUKAST SODIUM
  10. GLIMEPIRIDE 4MG [Concomitant]
     Active Substance: GLIMEPIRIDE
  11. STOOL SOFTENER 100MG [Concomitant]
  12. ALBUTEROL 0.083%  INHALATION [Concomitant]
  13. ALPRAZOLAM 1MG [Concomitant]
     Active Substance: ALPRAZOLAM
  14. NYSTATIN ORAL SUSPENSION [Concomitant]
     Active Substance: NYSTATIN
  15. POTASSIUM CHLORIDE 20MEQ [Concomitant]
     Active Substance: POTASSIUM CHLORIDE
  16. PRAVASTATIN 10MG [Concomitant]
     Active Substance: PRAVASTATIN
  17. VITAMIN D2 [Concomitant]
     Active Substance: ERGOCALCIFEROL
  18. PROMETHAZINE 25MG [Concomitant]
  19. SYNTHROID 0.025MG [Concomitant]

REACTIONS (4)
  - Diarrhoea [None]
  - Nausea [None]
  - Therapy interrupted [None]
  - Abdominal discomfort [None]

NARRATIVE: CASE EVENT DATE: 20200625
